FAERS Safety Report 4906563-1 (Version None)
Quarter: 2006Q1

REPORT INFORMATION
  Report Type: 
  Country: None (occurrence: None)
  Receive Date: 20060209
  Receipt Date: 20060130
  Transmission Date: 20060701
  Serious: Yes (Hospitalization)
  Sender: FDA-Public Use
  Company Number: AU-BRISTOL-MYERS SQUIBB COMPANY-13262894

PATIENT
  Age: 63 Year
  Sex: Male

DRUGS (1)
  1. LITALIR [Suspect]
     Indication: GLIOBLASTOMA
     Route: 048
     Dates: start: 20051125

REACTIONS (5)
  - BRAIN OEDEMA [None]
  - GENERAL PHYSICAL HEALTH DETERIORATION [None]
  - GLIOBLASTOMA [None]
  - HEADACHE [None]
  - MALIGNANT NEOPLASM PROGRESSION [None]
